FAERS Safety Report 21063540 (Version 1)
Quarter: 2022Q3

REPORT INFORMATION
  Report Type: Spontaneous
  Country: US (occurrence: None)
  Receive Date: 20220708
  Receipt Date: 20220708
  Transmission Date: 20221027
  Serious: Yes (Other)
  Sender: FDA-Public Use
  Company Number: None

PATIENT
  Age: 70 Year
  Sex: Female
  Weight: 54.9 kg

DRUGS (6)
  1. PAXLOVID [Suspect]
     Active Substance: NIRMATRELVIR\RITONAVIR
     Indication: COVID-19
     Dosage: 15 TABLET(S) TWICE A DAY ORAL?
     Route: 048
     Dates: start: 20220628, end: 20220702
  2. LEVOTHYROXINE [Concomitant]
     Active Substance: LEVOTHYROXINE
  3. DULOXETINE [Concomitant]
     Active Substance: DULOXETINE
  4. ESTRADIOL [Concomitant]
     Active Substance: ESTRADIOL
  5. VITAMIN D [Concomitant]
     Active Substance: VITAMIN D NOS
  6. DOCUSATE SODIUM [Concomitant]
     Active Substance: DOCUSATE SODIUM

REACTIONS (7)
  - Rebound effect [None]
  - Nausea [None]
  - Fatigue [None]
  - Oropharyngeal pain [None]
  - Nasal congestion [None]
  - Myalgia [None]
  - SARS-CoV-2 test positive [None]

NARRATIVE: CASE EVENT DATE: 20220707
